FAERS Safety Report 13029241 (Version 2)
Quarter: 2016Q4

REPORT INFORMATION
  Report Type: Spontaneous
  Country: FR (occurrence: FR)
  Receive Date: 20161215
  Receipt Date: 20161219
  Transmission Date: 20170207
  Serious: Yes (Other)
  Sender: FDA-Public Use
  Company Number: FR-ROCHE-1867465

PATIENT
  Sex: Male

DRUGS (1)
  1. LUCENTIS [Suspect]
     Active Substance: RANIBIZUMAB
     Indication: NEOVASCULAR AGE-RELATED MACULAR DEGENERATION
     Route: 031

REACTIONS (3)
  - Dry age-related macular degeneration [Unknown]
  - Drug ineffective [Unknown]
  - Visual acuity reduced [Unknown]

NARRATIVE: CASE EVENT DATE: 2012
